FAERS Safety Report 20481955 (Version 1)
Quarter: 2022Q1

REPORT INFORMATION
  Report Type: Spontaneous
  Country: AU (occurrence: AU)
  Receive Date: 20220216
  Receipt Date: 20220216
  Transmission Date: 20220423
  Serious: Yes (Other)
  Sender: FDA-Public Use
  Company Number: AU-TEVA-2022-AU-2008130

PATIENT
  Sex: Male

DRUGS (3)
  1. TESTOSTERONE [Suspect]
     Active Substance: TESTOSTERONE
     Route: 065
  2. FLUOXETINE HYDROCHLORIDE [Suspect]
     Active Substance: FLUOXETINE HYDROCHLORIDE
     Route: 065
  3. ST. JOHN^S WORT [Suspect]
     Active Substance: ST. JOHN^S WORT
     Route: 065

REACTIONS (8)
  - Serotonin syndrome [Unknown]
  - Abdominal pain [Unknown]
  - Chest pain [Unknown]
  - Dysuria [Unknown]
  - Hyponatraemia [Unknown]
  - Nausea [Unknown]
  - Tachycardia [Unknown]
  - Transaminases increased [Unknown]
